FAERS Safety Report 9270594 (Version 1)
Quarter: 2013Q2

REPORT INFORMATION
  Report Type: Other
  Country: GB (occurrence: GB)
  Receive Date: 20130503
  Receipt Date: 20130503
  Transmission Date: 20140414
  Serious: Yes (Other)
  Sender: FDA-Public Use
  Company Number: GB-WATSON-2013-07855

PATIENT
  Age: 47 Year
  Sex: Female

DRUGS (6)
  1. NAPROXEN (UNKNOWN) [Suspect]
     Indication: MYOSITIS
     Dosage: 250 MG, TID
     Route: 048
     Dates: start: 20130411, end: 20130411
  2. NAPROXEN (UNKNOWN) [Suspect]
     Dosage: 250 MG, SINGLE
     Route: 048
     Dates: start: 20130412, end: 20130412
  3. IBUPROFEN [Concomitant]
     Indication: PRODUCT USED FOR UNKNOWN INDICATION
     Dosage: IBUPROFEN TAKEN OVER 4 HOURS PRIOR TO 1ST DOSE
     Route: 065
  4. MEFENAMIC ACID [Concomitant]
     Indication: PRODUCT USED FOR UNKNOWN INDICATION
     Route: 065
  5. MEBEVERINE [Concomitant]
     Indication: PRODUCT USED FOR UNKNOWN INDICATION
     Route: 065
  6. OMEPRAZOLE [Concomitant]
     Indication: PRODUCT USED FOR UNKNOWN INDICATION

REACTIONS (15)
  - Local swelling [Unknown]
  - Somnolence [Unknown]
  - Cyanosis [Unknown]
  - Hypersensitivity [Unknown]
  - Abnormal dreams [Unknown]
  - Peripheral coldness [Unknown]
  - Headache [Unknown]
  - Tinnitus [Unknown]
  - Paraesthesia [Unknown]
  - Sensory loss [Unknown]
  - Hypoaesthesia [Unknown]
  - Memory impairment [Unknown]
  - Disturbance in attention [Unknown]
  - Swelling face [Unknown]
  - Cardiovascular disorder [Unknown]
